FAERS Safety Report 8587176-X (Version None)
Quarter: 2012Q3

REPORT INFORMATION
  Report Type: 
  Country: None (occurrence: None)
  Receive Date: 20120810
  Receipt Date: 20120420
  Transmission Date: 20120928
  Serious: No
  Sender: FDA-Public Use
  Company Number: US-ASTRAZENECA-2009UW07066

PATIENT
  Sex: Female
  Weight: 45.4 kg

DRUGS (5)
  1. FASLODEX [Suspect]
     Indication: BREAST CANCER
     Route: 030
     Dates: start: 20120410
  2. ARIMIDEX [Suspect]
     Indication: BREAST CANCER
     Route: 048
     Dates: start: 20050101
  3. VICODIN [Concomitant]
  4. ATENOLOL [Concomitant]
     Indication: HYPERTENSION
  5. CARTIA XT [Concomitant]
     Indication: HYPERTENSION

REACTIONS (4)
  - HEART RATE INCREASED [None]
  - INSOMNIA [None]
  - NAUSEA [None]
  - ALOPECIA [None]
